FAERS Safety Report 8047792-0 (Version None)
Quarter: 2012Q1

REPORT INFORMATION
  Report Type: 
  Country: None (occurrence: None)
  Receive Date: 20120116
  Receipt Date: 20120109
  Transmission Date: 20120608
  Serious: Yes (Hospitalization, Other)
  Sender: FDA-Public Use
  Company Number: DE-ELI_LILLY_AND_COMPANY-DE201201002042

PATIENT
  Sex: Male

DRUGS (1)
  1. HUMALOG [Suspect]
     Indication: DIABETES MELLITUS
     Route: 058

REACTIONS (6)
  - HOSPITALISATION [None]
  - HYPERTENSION [None]
  - DRUG DOSE OMISSION [None]
  - BLOOD GLUCOSE INCREASED [None]
  - BLINDNESS [None]
  - STENT PLACEMENT [None]
